FAERS Safety Report 8786415 (Version 2)
Quarter: 2013Q4

REPORT INFORMATION
  Report Type: Spontaneous
  Country: FR (occurrence: FR)
  Receive Date: 20120914
  Receipt Date: 20131031
  Transmission Date: 20140711
  Serious: Yes (Disabling)
  Sender: FDA-Public Use
  Company Number: FR-009507513-1209FRA002672

PATIENT
  Age: 74 Year
  Sex: Female

DRUGS (8)
  1. EZETROL [Suspect]
     Indication: DYSLIPIDAEMIA
     Dosage: 10 MG, QD
     Route: 048
     Dates: start: 2012
  2. CANDESARTAN CILEXETIL [Suspect]
     Indication: HYPERTENSION
     Dosage: 2 MG, QD
     Route: 048
     Dates: start: 201107
  3. ISOPTINE [Suspect]
     Indication: HYPERTENSION
     Dosage: 240 MG, QD
     Dates: start: 200708
  4. KARDEGIC [Suspect]
     Dosage: 75 MG, QD
     Route: 048
     Dates: start: 200708
  5. ALPRAZOLAM [Suspect]
     Dosage: 0.125 MG, QD
     Route: 048
     Dates: start: 200708
  6. ACETAMINOPHEN [Suspect]
     Dosage: 1 DF, PRN
     Route: 048
  7. LASILIX [Suspect]
     Indication: DYSPNOEA EXERTIONAL
     Dosage: 40 MG, QD
     Route: 048
     Dates: start: 201205, end: 201207
  8. ZYMAD [Suspect]
     Dosage: 1 DF, QM3
     Route: 048

REACTIONS (1)
  - Pulmonary fibrosis [Not Recovered/Not Resolved]
